FAERS Safety Report 18477556 (Version 2)
Quarter: 2020Q4

REPORT INFORMATION
  Report Type: Spontaneous
  Country: US (occurrence: US)
  Receive Date: 20201107
  Receipt Date: 20201203
  Transmission Date: 20210114
  Serious: Yes (Disabling, Other)
  Sender: FDA-Public Use
  Company Number: US-PURDUE-USA-2020-0169293

PATIENT
  Sex: Female

DRUGS (1)
  1. OXYCONTIN [Suspect]
     Active Substance: OXYCODONE HYDROCHLORIDE
     Indication: PRODUCT USED FOR UNKNOWN INDICATION
     Dosage: UNK
     Route: 048

REACTIONS (11)
  - Panic attack [Unknown]
  - Depression [Unknown]
  - Maternal exposure during pregnancy [Recovered/Resolved]
  - Leg amputation [Unknown]
  - Anxiety [Unknown]
  - Disability [Unknown]
  - Aggression [Unknown]
  - Drug dependence [Unknown]
  - Gun shot wound [Unknown]
  - Suicidal ideation [Unknown]
  - Sleep disorder [Unknown]
